FAERS Safety Report 9667317 (Version 1)
Quarter: 2013Q4

REPORT INFORMATION
  Report Type: Spontaneous
  Country: US (occurrence: US)
  Receive Date: 20131104
  Receipt Date: 20131104
  Transmission Date: 20140711
  Serious: No
  Sender: FDA-Public Use
  Company Number: US-BIOGENIDEC-2013BI090730

PATIENT
  Sex: Female

DRUGS (15)
  1. TECFIDERA [Suspect]
     Indication: MULTIPLE SCLEROSIS
     Route: 048
     Dates: start: 20130617
  2. ABILIFY [Concomitant]
  3. ADVAIR DISKUS [Concomitant]
  4. ALBUTEROL SULFATE [Concomitant]
  5. ALPRAZOLAM [Concomitant]
  6. ASPIRIN [Concomitant]
  7. ATENOLOL [Concomitant]
  8. BACLOFEN [Concomitant]
  9. CALCIUM 1200 [Concomitant]
  10. CRESTOR [Concomitant]
  11. CALTRATE 600 [Concomitant]
  12. DONEZEPRIL HCL [Concomitant]
  13. FENTANYL [Concomitant]
  14. FOSAMAX [Concomitant]
  15. LAMOTRIGINE [Concomitant]

REACTIONS (2)
  - Increased tendency to bruise [Unknown]
  - Impaired healing [Unknown]
